FAERS Safety Report 23618096 (Version 1)
Quarter: 2024Q1

REPORT INFORMATION
  Report Type: Report from Study
  Country: US (occurrence: US)
  Receive Date: 20240311
  Receipt Date: 20240311
  Transmission Date: 20240410
  Serious: Yes (Other)
  Sender: FDA-Public Use
  Company Number: US-ABBVIE-5672139

PATIENT
  Sex: Female

DRUGS (4)
  1. VENCLEXTA [Suspect]
     Active Substance: VENETOCLAX
     Indication: Chronic lymphocytic leukaemia
     Route: 048
     Dates: start: 202401
  2. MYRBETRIQ [Concomitant]
     Active Substance: MIRABEGRON
     Indication: Product used for unknown indication
  3. MYRBETRIQ [Concomitant]
     Active Substance: MIRABEGRON
     Indication: Product used for unknown indication
     Dosage: 50MG EVERY MORNING
  4. TAMSULOSIN [Suspect]
     Active Substance: TAMSULOSIN
     Indication: Hypertonic bladder
     Dosage: 0.4 MG EVERY NIGHT
     Route: 065
     Dates: start: 20240304

REACTIONS (4)
  - Red blood cell count decreased [Unknown]
  - Asthenia [Unknown]
  - Fatigue [Unknown]
  - Feeling jittery [Unknown]

NARRATIVE: CASE EVENT DATE: 20240101
